FAERS Safety Report 6295186-0 (Version None)
Quarter: 2009Q3

REPORT INFORMATION
  Report Type: 
  Country: None (occurrence: None)
  Receive Date: 20090803
  Receipt Date: 20090609
  Transmission Date: 20100115
  Serious: Yes (Hospitalization)
  Sender: FDA-Public Use
  Company Number: US-PURDUE-USA-2009-0039053

PATIENT
  Sex: Male

DRUGS (3)
  1. OXYCONTIN [Suspect]
     Indication: PAIN
     Dosage: 30 MG, BID
     Dates: start: 20000313, end: 20010306
  2. TYLENOL (CAPLET) [Concomitant]
  3. ADVIL LIQUI-GELS [Concomitant]

REACTIONS (5)
  - ABDOMINAL PAIN [None]
  - DECREASED APPETITE [None]
  - DRUG WITHDRAWAL SYNDROME [None]
  - PAIN [None]
  - WEIGHT DECREASED [None]
